FAERS Safety Report 22050331 (Version 1)
Quarter: 2023Q1

REPORT INFORMATION
  Report Type: Other
  Country: IL (occurrence: None)
  Receive Date: 20230301
  Receipt Date: 20230301
  Transmission Date: 20230418
  Serious: Yes (Hospitalization)
  Sender: FDA-Public Use
  Company Number: IL-ROCHE-3292887

PATIENT
  Age: 28 Year
  Sex: Male

DRUGS (2)
  1. OCREVUS [Suspect]
     Active Substance: OCRELIZUMAB
     Indication: Relapsing-remitting multiple sclerosis
     Dosage: MORE DOSAGE INFORMATION IS 600MG Q6M
     Route: 042
     Dates: start: 20221130
  2. BACLOFEN [Concomitant]
     Active Substance: BACLOFEN

REACTIONS (3)
  - Influenza [Recovered/Resolved]
  - Multiple sclerosis [Not Recovered/Not Resolved]
  - Orthosis user [Recovered/Resolved]

NARRATIVE: CASE EVENT DATE: 20230101
